FAERS Safety Report 16544914 (Version 3)
Quarter: 2023Q2

REPORT INFORMATION
  Report Type: Spontaneous
  Country: FR (occurrence: FR)
  Receive Date: 20190709
  Receipt Date: 20230621
  Transmission Date: 20230722
  Serious: Yes (Life-Threatening, Hospitalization, Other)
  Sender: FDA-Public Use
  Company Number: FR-SA-2019SA016365

PATIENT
  Age: 45 Year
  Sex: Female
  Weight: 119 kg

DRUGS (20)
  1. MEROPENEM [Suspect]
     Active Substance: MEROPENEM
     Indication: Meningitis meningococcal
     Dosage: 2 G, TID
     Route: 042
     Dates: start: 20181126, end: 20181228
  2. MEROPENEM [Suspect]
     Active Substance: MEROPENEM
     Indication: Infection
     Dosage: 2 G, TID
     Route: 042
     Dates: start: 20181127, end: 20190105
  3. MEROPENEM [Suspect]
     Active Substance: MEROPENEM
     Dosage: 2 G, BID
     Route: 042
     Dates: start: 20181229, end: 20190105
  4. FOSFOMYCIN [Suspect]
     Active Substance: FOSFOMYCIN
     Indication: Meningitis
     Dosage: 4 G, QID
     Route: 042
     Dates: start: 20181229, end: 20190101
  5. FOSFOMYCIN [Suspect]
     Active Substance: FOSFOMYCIN
     Indication: Osteitis
     Dosage: 4 G, BID
     Route: 042
     Dates: start: 20190102, end: 20190107
  6. FOSFOMYCIN [Suspect]
     Active Substance: FOSFOMYCIN
     Dosage: 4 G, QID
     Route: 042
     Dates: start: 20190108, end: 20190108
  7. VANCOMYCIN [Concomitant]
     Active Substance: VANCOMYCIN
     Indication: Osteitis
     Dosage: UNK
     Route: 042
     Dates: start: 20181126, end: 20181228
  8. VANCOMYCIN [Concomitant]
     Active Substance: VANCOMYCIN
     Indication: Meningitis
     Dosage: UNK
     Route: 042
     Dates: start: 20181127, end: 20181228
  9. VANCOMYCIN [Concomitant]
     Active Substance: VANCOMYCIN
     Indication: Meningitis meningococcal
  10. PANTOPRAZOLE [Concomitant]
     Active Substance: PANTOPRAZOLE
     Indication: Stress ulcer
     Dosage: 20 MG, QD
     Route: 048
     Dates: start: 20181020, end: 20181113
  11. PANTOPRAZOLE [Concomitant]
     Active Substance: PANTOPRAZOLE
     Dosage: 20 MG, QD
     Route: 048
     Dates: start: 20181116, end: 20181230
  12. PANTOPRAZOLE [Concomitant]
     Active Substance: PANTOPRAZOLE
     Dosage: 20 MG, QD
     Route: 048
     Dates: start: 20181121, end: 20190101
  13. FERROUS SULFATE [Concomitant]
     Active Substance: FERROUS SULFATE
     Indication: Iron deficiency
     Dosage: 80 MG, BID
     Route: 048
     Dates: start: 20181121, end: 20190102
  14. CITALOPRAM [Concomitant]
     Active Substance: CITALOPRAM HYDROBROMIDE
     Dosage: 20 MILLIGRAM
     Route: 065
  15. SODIUM FEREDETATE [Concomitant]
     Active Substance: SODIUM FEREDETATE
     Dosage: 15 MILLILITER, BID
     Route: 065
  16. FERROUS FUMARATE [Concomitant]
     Active Substance: FERROUS FUMARATE
     Dosage: UNK
     Route: 065
     Dates: start: 20190103
  17. AZTREONAM [Concomitant]
     Active Substance: AZTREONAM
     Dosage: 2 GRAM, Q8H
     Route: 065
     Dates: start: 20190108
  18. LANSOPRAZOLE [Concomitant]
     Active Substance: LANSOPRAZOLE
     Dosage: 15 MILLIGRAM, QD
     Route: 065
     Dates: start: 20190101
  19. COLISTIN [Concomitant]
     Active Substance: COLISTIN
     Dosage: UNK
     Route: 065
     Dates: start: 20190108
  20. FILGRASTIM [Concomitant]
     Active Substance: FILGRASTIM
     Dosage: UNK, 48 MUI
     Route: 065
     Dates: start: 20190105, end: 20190110

REACTIONS (13)
  - Immunoglobulins decreased [Unknown]
  - Erythema [Recovering/Resolving]
  - Oedema [Recovering/Resolving]
  - Oedema peripheral [Not Recovered/Not Resolved]
  - Vancomycin infusion reaction [Not Recovered/Not Resolved]
  - Skin exfoliation [Recovering/Resolving]
  - Blood albumin decreased [Unknown]
  - Rash [Recovered/Resolved]
  - Agranulocytosis [Recovered/Resolved]
  - Pruritus [Recovering/Resolving]
  - Drug reaction with eosinophilia and systemic symptoms [Recovering/Resolving]
  - Eosinophilia [Unknown]
  - Neutrophil count decreased [Unknown]

NARRATIVE: CASE EVENT DATE: 20181122
